FAERS Safety Report 8493950-0 (Version None)
Quarter: 2012Q3

REPORT INFORMATION
  Report Type: 
  Country: None (occurrence: None)
  Receive Date: 20120709
  Receipt Date: 20120702
  Transmission Date: 20120928
  Serious: Yes (Other)
  Sender: FDA-Public Use
  Company Number: GR-AMGEN-GRCSP2012039334

PATIENT
  Age: 61 Year
  Sex: Female
  Weight: 48.5 kg

DRUGS (4)
  1. MULTIVITAMIN                       /00097801/ [Concomitant]
  2. PROLIA [Suspect]
     Indication: OSTEOPOROSIS
     Dosage: 60 MG, Q6MO
     Dates: start: 20120525
  3. IRON [Concomitant]
  4. L-CARNITINE [Concomitant]

REACTIONS (3)
  - HYPOAESTHESIA [None]
  - FORMICATION [None]
  - SCIATICA [None]
